FAERS Safety Report 18517951 (Version 1)
Quarter: 2020Q4

REPORT INFORMATION
  Report Type: Spontaneous
  Country: BR (occurrence: BR)
  Receive Date: 20201118
  Receipt Date: 20201118
  Transmission Date: 20210114
  Serious: Yes (Hospitalization, Other)
  Sender: FDA-Public Use
  Company Number: NVSC2020BR304364

PATIENT
  Age: 47 Year
  Sex: Female

DRUGS (4)
  1. ALPELISIB [Suspect]
     Active Substance: ALPELISIB
     Indication: BREAST CANCER METASTATIC
     Dosage: 300 MG, QD
     Route: 048
  2. FULVESTRANT. [Suspect]
     Active Substance: FULVESTRANT
     Dosage: 500 MG, QMO (EVERY 28 DAYS)
     Route: 030
  3. ALPELISIB [Suspect]
     Active Substance: ALPELISIB
     Dosage: 200 MG, QD
     Route: 065
  4. FULVESTRANT. [Suspect]
     Active Substance: FULVESTRANT
     Indication: BREAST CANCER METASTATIC
     Dosage: 500 MG (D1, D15, AND D29)
     Route: 030

REACTIONS (5)
  - Diarrhoea [Unknown]
  - Fatigue [Unknown]
  - Toxicity to various agents [Unknown]
  - Visual impairment [Unknown]
  - Blood glucose increased [Unknown]
